FAERS Safety Report 11472023 (Version 5)
Quarter: 2015Q4

REPORT INFORMATION
  Report Type: Report from Study
  Country: NL (occurrence: NL)
  Receive Date: 20150908
  Receipt Date: 20151029
  Transmission Date: 20160304
  Serious: Yes (Hospitalization)
  Sender: FDA-Public Use
  Company Number: NL-BAXALTA-2015BLT001537

PATIENT
  Age: 69 Year
  Sex: Male

DRUGS (2)
  1. IMMUNOGLOBULIN, NORMAL HUMAN [Concomitant]
     Active Substance: HUMAN IMMUNOGLOBULIN G
     Indication: PRODUCT USED FOR UNKNOWN INDICATION
     Route: 065
  2. HYQVIA [Suspect]
     Active Substance: HUMAN IMMUNOGLOBULIN G\HYALURONIDASE RECOMBINANT HUMAN
     Indication: PRIMARY IMMUNODEFICIENCY SYNDROME
     Dosage: 20 G, EVERY 3 WK
     Route: 003
     Dates: start: 20150811

REACTIONS (2)
  - Hypotension [Recovered/Resolved]
  - Sense of oppression [Recovering/Resolving]

NARRATIVE: CASE EVENT DATE: 20150828
